FAERS Safety Report 22340013 (Version 1)
Quarter: 2023Q2

REPORT INFORMATION
  Report Type: Spontaneous
  Country: None (occurrence: US)
  Receive Date: 20230518
  Receipt Date: 20230518
  Transmission Date: 20230722
  Serious: Yes (Life-Threatening)
  Sender: FDA-Public Use
  Company Number: US-AnazaoHealth Corporation-2141669

PATIENT
  Age: 53 Year
  Sex: Female
  Weight: 98.182 kg

DRUGS (4)
  1. ESTRADIOL [Suspect]
     Active Substance: ESTRADIOL
     Indication: Hormone replacement therapy
     Route: 058
     Dates: start: 20230105
  2. TESTOSTERONE [Concomitant]
     Active Substance: TESTOSTERONE
     Route: 058
     Dates: start: 20230105
  3. TESTOSTERONE [Concomitant]
     Active Substance: TESTOSTERONE
     Route: 058
     Dates: start: 20230105
  4. TESTOSTERONE [Concomitant]
     Active Substance: TESTOSTERONE
     Route: 058
     Dates: start: 20230105

REACTIONS (1)
  - Breast cancer [Unknown]
